FAERS Safety Report 9439270 (Version 4)
Quarter: 2015Q2

REPORT INFORMATION
  Report Type: Report from Study
  Country: ES (occurrence: ES)
  Receive Date: 20130804
  Receipt Date: 20150625
  Transmission Date: 20150821
  Serious: Yes (Death, Disabling)
  Sender: FDA-Public Use
  Company Number: ES-ROCHE-1256750

PATIENT
  Age: 66 Year
  Sex: Female
  Weight: 72 kg

DRUGS (12)
  1. TIMOLOL [Concomitant]
     Active Substance: TIMOLOL
     Dosage: 1 DROP IN EACH EYE EVERY DAY
     Route: 047
  2. OMEPRAZOLE. [Concomitant]
     Active Substance: OMEPRAZOLE
     Route: 065
     Dates: end: 201202
  3. DOCETAXEL. [Suspect]
     Active Substance: DOCETAXEL
     Dosage: SECOND CYCLE
     Route: 042
  4. FLUVASTATIN [Concomitant]
     Active Substance: FLUVASTATIN SODIUM
     Route: 065
     Dates: start: 201202
  5. NICARDIPINE [Concomitant]
     Active Substance: NICARDIPINE
     Route: 065
     Dates: start: 201202
  6. PERJETA [Suspect]
     Active Substance: PERTUZUMAB
     Indication: BREAST CANCER METASTATIC
     Route: 042
     Dates: start: 20130619, end: 20130709
  7. FUROSEMIDE. [Concomitant]
     Active Substance: FUROSEMIDE
     Route: 065
     Dates: end: 201202
  8. TRASTUZUMAB [Suspect]
     Active Substance: TRASTUZUMAB
     Indication: BREAST CANCER METASTATIC
     Route: 042
     Dates: start: 20130530, end: 20130709
  9. CALCIUM CARBONATE/CHOLECALCIFEROL [Concomitant]
     Active Substance: CALCIUM CARBONATE\CHOLECALCIFEROL
     Dosage: 1000 CALCIUM/800 UI
     Route: 065
     Dates: start: 201202
  10. TRANKIMAZIN [Concomitant]
     Active Substance: ALPRAZOLAM
     Route: 065
     Dates: start: 201202
  11. DOCETAXEL. [Suspect]
     Active Substance: DOCETAXEL
     Indication: BREAST CANCER METASTATIC
     Route: 042
     Dates: start: 20130530, end: 20130709
  12. DOCETAXEL. [Suspect]
     Active Substance: DOCETAXEL
     Dosage: THIRD CYCLE
     Route: 042

REACTIONS (2)
  - Death [Fatal]
  - Skin toxicity [Recovering/Resolving]

NARRATIVE: CASE EVENT DATE: 20130625
